FAERS Safety Report 7047970 (Version 5)
Quarter: 2021Q2

REPORT INFORMATION
  Report Type: Spontaneous
  Country: GB (occurrence: GB)
  Receive Date: 20090713
  Receipt Date: 20210510
  Transmission Date: 20210717
  Serious: Yes (Hospitalization, Other)
  Sender: FDA-Public Use
  Company Number: GB-RANBAXY-2009RR-25477

PATIENT
  Sex: Female

DRUGS (13)
  1. DAPTOMYCIN. [Suspect]
     Active Substance: DAPTOMYCIN
     Indication: APLASTIC ANAEMIA
  2. CUBICIN [Suspect]
     Active Substance: DAPTOMYCIN
     Indication: APLASTIC ANAEMIA
     Dosage: UNK
     Route: 065
  3. CUBICIN [Suspect]
     Active Substance: DAPTOMYCIN
     Indication: ENDOCARDITIS BACTERIAL
     Dosage: UNK
     Route: 065
  4. CIPROFLOXACIN. [Suspect]
     Active Substance: CIPROFLOXACIN
     Indication: APLASTIC ANAEMIA
     Dosage: 1000 MG, UNK
     Route: 065
  5. FLUCONAZOLE. [Interacting]
     Active Substance: FLUCONAZOLE
     Indication: ENDOCARDITIS BACTERIAL
     Dosage: 400 MG, UNK
     Route: 065
  6. RIFAMPICIN [Suspect]
     Active Substance: RIFAMPIN
     Indication: ENDOCARDITIS BACTERIAL
     Dosage: 120 MG, UNK
     Route: 065
  7. RIFAMPIN. [Suspect]
     Active Substance: RIFAMPIN
     Indication: APLASTIC ANAEMIA
     Dosage: UNK
     Route: 065
  8. DAPTOMYCIN. [Suspect]
     Active Substance: DAPTOMYCIN
     Indication: ENDOCARDITIS BACTERIAL
     Dosage: 500 MG, UNK
     Route: 065
  9. NEORAL [Suspect]
     Active Substance: CYCLOSPORINE
     Indication: APLASTIC ANAEMIA
     Dosage: UNK
     Route: 065
  10. NEORAL [Suspect]
     Active Substance: CYCLOSPORINE
     Indication: ENDOCARDITIS BACTERIAL
  11. RIFAMPIN. [Suspect]
     Active Substance: RIFAMPIN
     Indication: ENDOCARDITIS BACTERIAL
     Dosage: UNK
     Route: 065
  12. CIPROFLOXACIN. [Suspect]
     Active Substance: CIPROFLOXACIN
     Indication: ENDOCARDITIS BACTERIAL
     Dosage: UNK
     Route: 065
  13. FLUCONAZOLE. [Interacting]
     Active Substance: FLUCONAZOLE
     Indication: APLASTIC ANAEMIA
     Dosage: UNK
     Route: 065

REACTIONS (1)
  - Drug interaction [Unknown]
